FAERS Safety Report 14649076 (Version 1)
Quarter: 2018Q1

REPORT INFORMATION
  Report Type: Spontaneous
  Country: ES (occurrence: ES)
  Receive Date: 20180316
  Receipt Date: 20180316
  Transmission Date: 20180509
  Serious: Yes (Life-Threatening, Hospitalization)
  Sender: FDA-Public Use
  Company Number: ES-B. BRAUN MEDICAL INC.-2043947

PATIENT
  Age: 69 Year
  Sex: Female

DRUGS (7)
  1. ATORVASTATIN CALCIUM. [Concomitant]
     Active Substance: ATORVASTATIN CALCIUM
  2. ACETAZOLAMIDE. [Suspect]
     Active Substance: ACETAZOLAMIDE
     Route: 048
  3. RANITIDINE. [Concomitant]
     Active Substance: RANITIDINE
  4. METFORMIN [Suspect]
     Active Substance: METFORMIN HYDROCHLORIDE
  5. 20% MANNITOL INJECTION USP 0264-7578-10 0264-7578-20 [Suspect]
     Active Substance: MANNITOL
  6. SITAGLIPTIN [Suspect]
     Active Substance: SITAGLIPTIN
  7. SEVOFLURANE. [Suspect]
     Active Substance: SEVOFLURANE
     Route: 055

REACTIONS (2)
  - Cardio-respiratory arrest [None]
  - Acidosis [None]

NARRATIVE: CASE EVENT DATE: 20180206
